FAERS Safety Report 17264484 (Version 1)
Quarter: 2020Q1

REPORT INFORMATION
  Report Type: Spontaneous
  Country: US (occurrence: US)
  Receive Date: 20200113
  Receipt Date: 20200113
  Transmission Date: 20200409
  Serious: No
  Sender: FDA-Public Use
  Company Number: US-BAYER-2020-005189

PATIENT

DRUGS (1)
  1. GADAVIST [Suspect]
     Active Substance: GADOBUTROL
     Indication: SCAN WITH CONTRAST
     Dosage: 7 ML, ONCE
     Route: 042
     Dates: start: 20200109, end: 20200109

REACTIONS (1)
  - Urticaria [None]

NARRATIVE: CASE EVENT DATE: 20200109
